FAERS Safety Report 17459312 (Version 1)
Quarter: 2020Q1

REPORT INFORMATION
  Report Type: Spontaneous
  Country: US (occurrence: US)
  Receive Date: 20200226
  Receipt Date: 20200226
  Transmission Date: 20200409
  Serious: Yes (Hospitalization)
  Sender: FDA-Public Use
  Company Number: US-ROCHE-2555423

PATIENT
  Sex: Male

DRUGS (2)
  1. XELODA [Suspect]
     Active Substance: CAPECITABINE
     Indication: NEOPLASM MALIGNANT
     Dosage: 1 TABLET TWICE DAILY ALTERNATING WEEKS
     Route: 048
     Dates: start: 20170602
  2. XELODA [Suspect]
     Active Substance: CAPECITABINE
     Dosage: 1 TABLET TWICE DAILY ALTERNATING WEEKS
     Route: 048
     Dates: start: 20170602

REACTIONS (2)
  - Myocardial infarction [Unknown]
  - Oesophageal rupture [Unknown]
